FAERS Safety Report 4752365-9 (Version None)
Quarter: 2005Q3

REPORT INFORMATION
  Report Type: 
  Country: None (occurrence: None)
  Receive Date: 20050824
  Receipt Date: 20050824
  Transmission Date: 20060218
  Serious: Yes (Other)
  Sender: FDA-Public Use
  Company Number: None

PATIENT
  Age: 51 Year
  Sex: Female

DRUGS (8)
  1. IRON DEXTRAN [Suspect]
     Indication: ANAEMIA
     Dosage: 1000MG ONE TIME IV DRIP
     Route: 042
     Dates: start: 20050703, end: 20050803
  2. GLUCOTROL [Concomitant]
  3. PRILOSEC [Concomitant]
  4. LOTREL [Concomitant]
  5. HYDROCHLOROTHIAZIDE [Concomitant]
  6. COUMADIN [Concomitant]
  7. SINGULAIR [Concomitant]
  8. ADVAIR DISKUS 100/50 [Concomitant]

REACTIONS (3)
  - INFUSION RELATED REACTION [None]
  - INJECTION SITE PRURITUS [None]
  - MUSCLE SPASMS [None]
